FAERS Safety Report 6438809-5 (Version None)
Quarter: 2009Q4

REPORT INFORMATION
  Report Type: 
  Country: None (occurrence: None)
  Receive Date: 20091113
  Receipt Date: 20091106
  Transmission Date: 20100525
  Serious: Yes (Hospitalization)
  Sender: FDA-Public Use
  Company Number: DE-JNJFOC-20091103047

PATIENT
  Age: 88 Year
  Sex: Female
  Weight: 53.9 kg

DRUGS (9)
  1. REMINYL [Suspect]
     Indication: DRUG USE FOR UNKNOWN INDICATION
     Route: 048
     Dates: start: 20090515, end: 20090517
  2. MELPERON [Interacting]
     Route: 048
     Dates: start: 20090507
  3. MELPERON [Interacting]
     Route: 048
     Dates: start: 20090507
  4. MELPERON [Interacting]
     Route: 048
     Dates: start: 20090507
  5. MELPERON [Interacting]
     Indication: DRUG USE FOR UNKNOWN INDICATION
     Route: 048
     Dates: start: 20090507
  6. AMLODIPINE [Concomitant]
     Route: 048
  7. RISPERDAL [Concomitant]
     Route: 048
     Dates: start: 20090514
  8. RISPERDAL [Concomitant]
     Route: 048
     Dates: start: 20090514
  9. RISPERDAL [Concomitant]
     Route: 048
     Dates: start: 20090514

REACTIONS (3)
  - DECREASED APPETITE [None]
  - DRUG INTERACTION [None]
  - VOMITING [None]
